FAERS Safety Report 14537819 (Version 1)
Quarter: 2018Q1

REPORT INFORMATION
  Report Type: Spontaneous
  Country: US (occurrence: US)
  Receive Date: 20180215
  Receipt Date: 20180215
  Transmission Date: 20180509
  Serious: Yes (Other)
  Sender: FDA-Public Use
  Company Number: US-CONCORDIA PHARMACEUTICALS INC.-GSH201802-000592

PATIENT
  Sex: Female
  Weight: 94.43 kg

DRUGS (2)
  1. PENICILLIN [Suspect]
     Active Substance: PENICILLIN
     Route: 065
  2. HYDROXYCHLOROQUINE TABLET [Suspect]
     Active Substance: HYDROXYCHLOROQUINE
     Route: 048

REACTIONS (2)
  - Urticaria [Unknown]
  - Drug hypersensitivity [Unknown]
